FAERS Safety Report 6847662-7 (Version None)
Quarter: 2010Q3

REPORT INFORMATION
  Report Type: 
  Country: None (occurrence: None)
  Receive Date: 20100716
  Receipt Date: 20100705
  Transmission Date: 20110219
  Serious: Yes (Hospitalization, Other)
  Sender: FDA-Public Use
  Company Number: PHHY2010NL43927

PATIENT
  Sex: Female

DRUGS (13)
  1. ZOMETA [Suspect]
     Dosage: 4 MG/5 ML
     Route: 042
     Dates: start: 20100212
  2. ZOMETA [Suspect]
     Dosage: 4 MG/5 ML
     Route: 042
     Dates: start: 20100312
  3. ZOMETA [Suspect]
     Dosage: 4 MG/5 ML
     Route: 042
     Dates: start: 20100415
  4. ZOMETA [Suspect]
     Dosage: 4 MG/5 ML
     Route: 042
     Dates: start: 20100507
  5. ZOMETA [Suspect]
     Dosage: 4 MG/5 ML
     Route: 042
     Dates: start: 20100604
  6. ZOMETA [Suspect]
     Dosage: 4 MG/5 ML
     Route: 042
     Dates: start: 20100702
  7. NAPROXEN [Concomitant]
     Dosage: 500 MG, NEEDED
  8. PANADOL [Concomitant]
     Dosage: 500 MG, WHEN NEEDED
  9. DEXAMETHASONE [Concomitant]
     Dosage: 3 TIMES DAILY
  10. LACTULOSE [Concomitant]
     Dosage: 15 ML 2DD
  11. XELODA [Concomitant]
     Dosage: 9 CHEMO TABLETS 14 DAYS 2DD
  12. BUMETANIDE [Concomitant]
  13. FLUCLOXACILLINE [Concomitant]
     Dosage: 500 MG, 4DD
     Dates: start: 20100701

REACTIONS (5)
  - HAEMOGLOBIN DECREASED [None]
  - INFLUENZA LIKE ILLNESS [None]
  - INFUSION SITE HAEMORRHAGE [None]
  - NAIL BED INFLAMMATION [None]
  - NAIL OPERATION [None]
